FAERS Safety Report 15600429 (Version 2)
Quarter: 2021Q3

REPORT INFORMATION
  Report Type: Spontaneous
  Country: US (occurrence: US)
  Receive Date: 20181109
  Receipt Date: 20210724
  Transmission Date: 20211014
  Serious: Yes (Hospitalization, Other)
  Sender: FDA-Public Use
  Company Number: US-MACLEODS PHARMACEUTICALS US LTD-MAC2018018559

PATIENT

DRUGS (7)
  1. DULOXETINE 30 MG [Suspect]
     Active Substance: DULOXETINE
     Indication: NEUROPATHY PERIPHERAL
     Dosage: 30 MILLIGRAM, BID
     Route: 048
  2. ONDANSETRON 4 MG [Suspect]
     Active Substance: ONDANSETRON
     Indication: VOMITING
     Dosage: 16 MILLIGRAM, SINGLE, TOTAL, TOTAL OF 16 MG IN DOSES OF 4 MG OF ONDANSETRON
     Route: 065
  3. PROMETHAZINE [Suspect]
     Active Substance: PROMETHAZINE HYDROCHLORIDE
     Indication: NAUSEA
     Dosage: 12.5 MILLIGRAM, PRN, 12.5?25 MG ORAL AT HOME AS NEEDED FOR MILD NAUSEA
     Route: 048
  4. PROMETHAZINE [Suspect]
     Active Substance: PROMETHAZINE HYDROCHLORIDE
     Dosage: 25 MILLIGRAM, PRN, 12.5?25 MG ORAL AT HOME AS NEEDED FOR MILD NAUSEA
     Route: 048
  5. TRAMADOL 50 MG [Suspect]
     Active Substance: TRAMADOL
     Indication: PAIN
     Dosage: 50 MILLIGRAM, PRN
     Route: 048
  6. ONDANSETRON 4 MG [Suspect]
     Active Substance: ONDANSETRON
     Indication: NAUSEA
  7. PROMETHAZINE [Suspect]
     Active Substance: PROMETHAZINE HYDROCHLORIDE
     Dosage: 25 MILLIGRAM, SINGLE, TOTAL, DURING HER HOSPITAL STAY, SHE RECEIVED ONE 25 MG DOSE OF INTRAVENOUS
     Route: 042

REACTIONS (3)
  - Pain [Recovered/Resolved]
  - Condition aggravated [Recovered/Resolved]
  - Serotonin syndrome [Recovered/Resolved]
